FAERS Safety Report 7117292-0 (Version None)
Quarter: 2010Q4

REPORT INFORMATION
  Report Type: 
  Country: None (occurrence: None)
  Receive Date: 20101122
  Receipt Date: 20101117
  Transmission Date: 20110411
  Serious: Yes (Life-Threatening, Hospitalization, Other)
  Sender: FDA-Public Use
  Company Number: PHHY2010BE62525

PATIENT
  Age: 22 Year
  Sex: Female
  Weight: 66 kg

DRUGS (15)
  1. EXJADE [Suspect]
     Indication: HAEMOSIDEROSIS
     Dosage: 30 MG/ KG I.E 02 GRAM
     Route: 048
     Dates: start: 20100501
  2. ZESTRIL [Concomitant]
  3. BUMEX [Concomitant]
  4. FOLAVIT [Concomitant]
  5. ASAFLOW [Concomitant]
  6. SINTROM [Concomitant]
  7. LANOXIN [Concomitant]
  8. LASIX [Concomitant]
  9. ALDACTONE [Concomitant]
  10. KREDEX [Concomitant]
  11. ASPEGIC 1000 [Concomitant]
  12. CORDARONE [Concomitant]
  13. MEDROL [Concomitant]
  14. INSULIN [Concomitant]
  15. ZANTAC [Concomitant]

REACTIONS (8)
  - BRAIN HYPOXIA [None]
  - CARDIOVERSION [None]
  - CIRCULATORY COLLAPSE [None]
  - CYTOTOXIC OEDEMA [None]
  - LOSS OF CONSCIOUSNESS [None]
  - RESUSCITATION [None]
  - SPEECH DISORDER [None]
  - VENTRICULAR FIBRILLATION [None]
